FAERS Safety Report 17388452 (Version 3)
Quarter: 2020Q1

REPORT INFORMATION
  Report Type: Spontaneous
  Country: US (occurrence: US)
  Receive Date: 20200207
  Receipt Date: 20200306
  Transmission Date: 20200409
  Serious: Yes (Other)
  Sender: FDA-Public Use
  Company Number: US-JNJFOC-20200203416

PATIENT
  Sex: Female

DRUGS (1)
  1. XARELTO [Suspect]
     Active Substance: RIVAROXABAN
     Indication: PRODUCT USED FOR UNKNOWN INDICATION
     Route: 048

REACTIONS (10)
  - Cardiac assistance device user [Unknown]
  - Fall [Unknown]
  - Product dose omission [Unknown]
  - Insomnia [Unknown]
  - General physical condition abnormal [Unknown]
  - Glaucoma [Not Recovered/Not Resolved]
  - Rotator cuff syndrome [Unknown]
  - Arthropathy [Unknown]
  - Cataract [Not Recovered/Not Resolved]
  - Migraine [Not Recovered/Not Resolved]
